FAERS Safety Report 24576796 (Version 1)
Quarter: 2024Q4

REPORT INFORMATION
  Report Type: Report from Study
  Country: IE (occurrence: IE)
  Receive Date: 20241104
  Receipt Date: 20241104
  Transmission Date: 20250115
  Serious: Yes (Other)
  Sender: NOVARTIS
  Company Number: IE-002147023-NVSC2021IE127376

PATIENT
  Age: 55 Year
  Sex: Female
  Weight: 66.5 kg

DRUGS (1)
  1. GILENYA [Suspect]
     Active Substance: FINGOLIMOD HYDROCHLORIDE
     Indication: Relapsing-remitting multiple sclerosis
     Dosage: 0.5 MG, QD
     Route: 048
     Dates: start: 20181001

REACTIONS (7)
  - Kidney infection [Not Recovered/Not Resolved]
  - Musculoskeletal chest pain [Not Recovered/Not Resolved]
  - Vomiting [Recovering/Resolving]
  - COVID-19 [Not Recovered/Not Resolved]
  - Diarrhoea [Recovering/Resolving]
  - Malaise [Not Recovered/Not Resolved]
  - Hypertension [Unknown]

NARRATIVE: CASE EVENT DATE: 20220430
